FAERS Safety Report 14033662 (Version 1)
Quarter: 2017Q4

REPORT INFORMATION
  Report Type: Other
  Country: IT (occurrence: IT)
  Receive Date: 20171003
  Receipt Date: 20171003
  Transmission Date: 20180321
  Serious: Yes (Other)
  Sender: FDA-Public Use
  Company Number: IT-ASTELLAS-2017US039033

PATIENT
  Age: 42 Year
  Sex: Female

DRUGS (1)
  1. ISAVUCONAZOLE [Suspect]
     Active Substance: ISAVUCONAZOLE
     Indication: PNEUMONITIS
     Route: 042
     Dates: start: 20170830

REACTIONS (2)
  - Off label use [Unknown]
  - Hepatotoxicity [Unknown]

NARRATIVE: CASE EVENT DATE: 20170902
